FAERS Safety Report 5410719-1 (Version None)
Quarter: 2007Q3

REPORT INFORMATION
  Report Type: 
  Country: None (occurrence: None)
  Receive Date: 20070810
  Receipt Date: 20070117
  Transmission Date: 20080115
  Serious: No
  Sender: FDA-Public Use
  Company Number: A0635975A

PATIENT
  Age: 32 Year
  Sex: Male

DRUGS (1)
  1. PAXIL CR [Suspect]
     Indication: DEPRESSION
     Dosage: 12.5MG PER DAY
     Route: 048
     Dates: start: 20061201, end: 20070115

REACTIONS (3)
  - LOSS OF LIBIDO [None]
  - NIGHT SWEATS [None]
  - SEXUAL DYSFUNCTION [None]
